FAERS Safety Report 7466041-5 (Version None)
Quarter: 2011Q2

REPORT INFORMATION
  Report Type: 
  Country: None (occurrence: None)
  Receive Date: 20110509
  Receipt Date: 20101101
  Transmission Date: 20111010
  Serious: Yes (Hospitalization)
  Sender: FDA-Public Use
  Company Number: US-ALEXION-A201000543

PATIENT
  Sex: Female
  Weight: 49.1 kg

DRUGS (4)
  1. TYLENOL (CAPLET) [Concomitant]
     Dosage: 400 MG, AS NEEDED Q6HR
  2. WARFARIN [Concomitant]
     Dosage: 400 MG, QD
  3. SOLIRIS [Suspect]
     Indication: PAROXYSMAL NOCTURNAL HAEMOGLOBINURIA
     Dosage: 900 MG, Q2W
     Route: 042
     Dates: start: 20081001
  4. NORCO [Concomitant]
     Dosage: 5 MG, AS NEEDED Q6H

REACTIONS (10)
  - HEADACHE [None]
  - ANAEMIA [None]
  - INTERNATIONAL NORMALISED RATIO INCREASED [None]
  - HEART RATE INCREASED [None]
  - RETICULOCYTE COUNT INCREASED [None]
  - ASCITES [None]
  - TREATMENT NONCOMPLIANCE [None]
  - THROMBOCYTOPENIA [None]
  - BLOOD LACTATE DEHYDROGENASE INCREASED [None]
  - JAUNDICE [None]
